FAERS Safety Report 11512445 (Version 2)
Quarter: 2015Q3

REPORT INFORMATION
  Report Type: Spontaneous
  Country: NZ (occurrence: NZ)
  Receive Date: 20150916
  Receipt Date: 20150916
  Transmission Date: 20151125
  Serious: Yes (Other)
  Sender: FDA-Public Use
  Company Number: PHHY2015NZ110667

PATIENT
  Age: 12 Year
  Sex: Male

DRUGS (2)
  1. MYCOPHENOLIC ACID. [Suspect]
     Active Substance: MYCOPHENOLIC ACID
     Indication: TYPE III IMMUNE COMPLEX MEDIATED REACTION
     Route: 065
  2. PREDNISOLONE. [Suspect]
     Active Substance: PREDNISOLONE
     Indication: TYPE III IMMUNE COMPLEX MEDIATED REACTION
     Route: 065

REACTIONS (2)
  - Respiratory disorder [Recovering/Resolving]
  - Bronchiectasis [Recovering/Resolving]

NARRATIVE: CASE EVENT DATE: 200412
